FAERS Safety Report 15132980 (Version 3)
Quarter: 2018Q3

REPORT INFORMATION
  Report Type: Spontaneous
  Country: US (occurrence: US)
  Receive Date: 20180712
  Receipt Date: 20180823
  Transmission Date: 20181010
  Serious: No
  Sender: FDA-Public Use
  Company Number: US-ASTRAZENECA-2018SE79918

PATIENT
  Age: 27000 Day
  Sex: Female
  Weight: 108.9 kg

DRUGS (6)
  1. SYMBICORT [Suspect]
     Active Substance: BUDESONIDE\FORMOTEROL FUMARATE DIHYDRATE
     Indication: ASTHMA
     Dosage: 80/4.5 UG, TWO PUFFS, TWICE A DAY (TWO PUFFS IN THE MORNING AND NIGHT)
     Route: 055
     Dates: start: 201805
  2. QUINAPRIL. [Concomitant]
     Active Substance: QUINAPRIL
     Dosage: DOSE AND FREQUENCY UNKNOWN.
     Route: 065
  3. CITALOPRAM HYDROBROMIDE. [Concomitant]
     Active Substance: CITALOPRAM HYDROBROMIDE
     Dosage: DOSE AND FREQUENCY UNKNOWN.
     Route: 065
  4. SYMBICORT [Suspect]
     Active Substance: BUDESONIDE\FORMOTEROL FUMARATE DIHYDRATE
     Indication: ASTHMA
     Dosage: 80/4.5 UG, ONE PUFF IN THE MORNING AND ONE PUFF AT NIGHT
     Route: 055
     Dates: start: 20180606
  5. SYMBICORT [Suspect]
     Active Substance: BUDESONIDE\FORMOTEROL FUMARATE DIHYDRATE
     Indication: ASTHMA
     Dosage: 80/4.5 UG, TWO PUFFS AT NIGHT AND ONE PUFF IN THE MORNING
     Route: 055
  6. TORSEMIDE. [Concomitant]
     Active Substance: TORSEMIDE
     Dosage: DOSE AND FREQUENCY UNKNOWN.
     Route: 065

REACTIONS (12)
  - Nervousness [Unknown]
  - Device failure [Unknown]
  - Nervousness [Not Recovered/Not Resolved]
  - Hot flush [Recovered/Resolved]
  - Throat irritation [Unknown]
  - Wrong technique in product usage process [Unknown]
  - Paraesthesia [Unknown]
  - Burning sensation [Recovered/Resolved]
  - Circumstance or information capable of leading to medication error [Unknown]
  - Intentional product misuse [Unknown]
  - Off label use [Unknown]
  - Intentional product use issue [Unknown]

NARRATIVE: CASE EVENT DATE: 20180606
